FAERS Safety Report 8798963 (Version 1)
Quarter: 2012Q4

REPORT INFORMATION
  Report Type: Spontaneous
  Country: US (occurrence: None)
  Receive Date: 20120918
  Receipt Date: 20120918
  Transmission Date: 20130627
  Serious: Yes (Hospitalization)
  Sender: FDA-Public Use
  Company Number: None

PATIENT
  Weight: 65.77 kg

DRUGS (1)
  1. CLINDAMYCIN [Suspect]
     Indication: SURGICAL PROCEDURE
     Dosage: 150 mg. Twice daily po
     Route: 048
     Dates: start: 20120911, end: 20120913

REACTIONS (6)
  - Gastrointestinal pain [None]
  - Dyspepsia [None]
  - Odynophagia [None]
  - Dysphagia [None]
  - Abdominal pain upper [None]
  - Nausea [None]
